FAERS Safety Report 8059975-4 (Version None)
Quarter: 2012Q1

REPORT INFORMATION
  Report Type: 
  Country: None (occurrence: None)
  Receive Date: 20120120
  Receipt Date: 20120105
  Transmission Date: 20120608
  Serious: Yes (Hospitalization, Other)
  Sender: FDA-Public Use
  Company Number: PL-ARROW GEN-2012-00411

PATIENT
  Age: 72 Year
  Sex: Male

DRUGS (6)
  1. CYCLOSPORINE [Suspect]
     Indication: IMMUNOSUPPRESSION
     Dosage: UNK
  2. TACROLIMUS [Suspect]
     Indication: IMMUNOSUPPRESSION
     Dosage: UNK
  3. PREDNISONE TAB [Suspect]
     Indication: IMMUNOSUPPRESSION
     Dosage: UNK
  4. EVEROLIMUS [Suspect]
     Indication: IMMUNOSUPPRESSION
     Dosage: UNK
  5. MYCOPHENOLATE MEFETIL [Suspect]
     Indication: IMMUNOSUPPRESSION
     Dosage: UNK
  6. AZATHIOPRINE [Suspect]
     Indication: IMMUNOSUPPRESSION
     Dosage: UNK

REACTIONS (4)
  - BASAL CELL CARCINOMA [None]
  - TUBERCULOSIS [None]
  - PULMONARY EMBOLISM [None]
  - GINGIVAL HYPERTROPHY [None]
